FAERS Safety Report 5662285-3 (Version None)
Quarter: 2008Q1

REPORT INFORMATION
  Report Type: 
  Country: None (occurrence: None)
  Receive Date: 20080312
  Receipt Date: 20080305
  Transmission Date: 20080703
  Serious: Yes (Hospitalization, Other)
  Sender: FDA-Public Use
  Company Number: US-MERCK-0705USA02808

PATIENT
  Age: 78 Year
  Sex: Female

DRUGS (1)
  1. FOSAMAX [Suspect]
     Indication: OSTEOPOROSIS
     Route: 048
     Dates: start: 20020401, end: 20060301

REACTIONS (18)
  - ATRIAL FIBRILLATION [None]
  - CARDIAC DISORDER [None]
  - CELLULITIS [None]
  - COLONIC POLYP [None]
  - DYSPHAGIA [None]
  - EYE DISORDER [None]
  - GASTROINTESTINAL DISORDER [None]
  - HELICOBACTER INFECTION [None]
  - HYPOTHYROIDISM [None]
  - LEUKOPLAKIA [None]
  - MALNUTRITION [None]
  - NEOPLASM MALIGNANT [None]
  - ORAL DISORDER [None]
  - OSTEONECROSIS [None]
  - OTITIS MEDIA CHRONIC [None]
  - PATELLA FRACTURE [None]
  - RESPIRATORY FAILURE [None]
  - SQUAMOUS CELL CARCINOMA [None]
